FAERS Safety Report 5655419-8 (Version None)
Quarter: 2008Q1

REPORT INFORMATION
  Report Type: 
  Country: None (occurrence: None)
  Receive Date: 20080307
  Receipt Date: 20080226
  Transmission Date: 20080703
  Serious: Yes (Other)
  Sender: FDA-Public Use
  Company Number: PHHY2008JP02023

PATIENT
  Age: 85 Year
  Sex: Male

DRUGS (7)
  1. FLUVASTATIN [Suspect]
     Indication: HYPERCHOLESTEROLAEMIA
     Dosage: 30 MG PER DAY
     Route: 048
     Dates: start: 20071221, end: 20080215
  2. GLYBURIDE [Concomitant]
     Dosage: 2.5 MG, UNK
     Route: 048
     Dates: start: 20071109
  3. BASEN [Concomitant]
     Dosage: 0.3 MG, UNK
     Route: 048
     Dates: start: 20080205
  4. MICARDIS [Concomitant]
     Dosage: 40 MG, UNK
     Route: 048
     Dates: start: 20080205
  5. NORVASC [Concomitant]
     Dosage: 2.5 MG, UNK
     Route: 048
     Dates: start: 20080205
  6. URIEF [Concomitant]
     Dosage: 4 MG, UNK
     Route: 048
     Dates: start: 20071109
  7. DEPAS [Concomitant]
     Dosage: 0.5 MG, UNK
     Route: 048
     Dates: start: 20071109

REACTIONS (4)
  - BLOOD GLUCOSE INCREASED [None]
  - GLYCOSYLATED HAEMOGLOBIN INCREASED [None]
  - PRURITUS [None]
  - RASH [None]
